FAERS Safety Report 10089527 (Version 3)
Quarter: 2014Q2

REPORT INFORMATION
  Report Type: Spontaneous
  Country: JP (occurrence: JP)
  Receive Date: 20140421
  Receipt Date: 20140425
  Transmission Date: 20141212
  Serious: Yes (Life-Threatening, Hospitalization)
  Sender: FDA-Public Use
  Company Number: JP-SA-2013SA125461

PATIENT
  Age: 74 Year
  Sex: Male
  Weight: 75 kg

DRUGS (11)
  1. AMARYL [Suspect]
     Indication: DIABETES MELLITUS
     Route: 048
     Dates: end: 20131122
  2. AMARYL [Suspect]
     Indication: DIABETES MELLITUS
     Route: 048
     Dates: start: 201201, end: 201211
  3. ALLEGRA [Suspect]
     Indication: SEASONAL ALLERGY
     Route: 048
     Dates: end: 20131122
  4. AMLODIN [Suspect]
     Indication: HYPERTENSION
     Route: 048
     Dates: end: 20131122
  5. MYSLEE [Suspect]
     Indication: INSOMNIA
     Route: 048
     Dates: end: 20131122
  6. UNISIA [Suspect]
     Indication: HYPERTENSION
     Route: 048
     Dates: end: 20131122
  7. LIDUC M [Suspect]
     Indication: HYPERLIPIDAEMIA
     Route: 048
     Dates: end: 20131122
  8. BLOPRESS [Concomitant]
  9. METGLUCO [Concomitant]
  10. MEVALOTIN [Concomitant]
  11. UNISIA [Concomitant]

REACTIONS (4)
  - Liver disorder [Recovered/Resolved]
  - Transaminases increased [Recovered/Resolved]
  - Jaundice [Recovering/Resolving]
  - Malaise [Recovering/Resolving]
